FAERS Safety Report 21740056 (Version 1)
Quarter: 2022Q4

REPORT INFORMATION
  Report Type: Spontaneous
  Country: US (occurrence: US)
  Receive Date: 20221216
  Receipt Date: 20221216
  Transmission Date: 20230113
  Serious: No
  Sender: FDA-Public Use
  Company Number: US-REGENERON PHARMACEUTICALS, INC.-2022-090505

PATIENT
  Age: 86 Year
  Sex: Male

DRUGS (1)
  1. EYLEA [Suspect]
     Active Substance: AFLIBERCEPT
     Indication: Neovascular age-related macular degeneration
     Dosage: 2 MG EVERY 7 WEEKS IN LEFT EYE
     Dates: start: 20210610, end: 20211027

REACTIONS (2)
  - Product dose omission issue [Unknown]
  - Retinal drusen [Unknown]

NARRATIVE: CASE EVENT DATE: 20220613
